FAERS Safety Report 15546185 (Version 1)
Quarter: 2018Q4

REPORT INFORMATION
  Report Type: Spontaneous
  Country: US (occurrence: US)
  Receive Date: 20181017
  Receipt Date: 20181017
  Transmission Date: 20190205
  Serious: Yes (Hospitalization)
  Sender: FDA-Public Use
  Company Number: None

PATIENT
  Age: 49 Year
  Sex: Female
  Weight: 53.9 kg

DRUGS (2)
  1. DEXAMETHASONE. [Suspect]
     Active Substance: DEXAMETHASONE
     Dates: end: 20181009
  2. LENALIDOMIDE (CC-5013) [Suspect]
     Active Substance: LENALIDOMIDE
     Dates: end: 20181010

REACTIONS (9)
  - Pyrexia [None]
  - Tachycardia [None]
  - Malaise [None]
  - Presyncope [None]
  - Asthenia [None]
  - Epistaxis [None]
  - Dizziness [None]
  - Febrile neutropenia [None]
  - Enterobacter infection [None]

NARRATIVE: CASE EVENT DATE: 20181011
